FAERS Safety Report 24004739 (Version 1)
Quarter: 2024Q2

REPORT INFORMATION
  Report Type: Spontaneous
  Country: JP (occurrence: JP)
  Receive Date: 20240624
  Receipt Date: 20240624
  Transmission Date: 20240716
  Serious: Yes (Other)
  Sender: FDA-Public Use
  Company Number: JP-BAYER-2024A089634

PATIENT

DRUGS (1)
  1. EYLEA [Suspect]
     Active Substance: AFLIBERCEPT
     Indication: Age-related macular degeneration
     Dosage: INTRAVITREAL INJECTION ONCE EVERY 4 MONTHS; SOLUTION FOR INJECTION IN PRE-FILLED SYRINGE; 40 MG/ML

REACTIONS (1)
  - Hepatitis B reactivation [Unknown]
